FAERS Safety Report 9712999 (Version 1)
Quarter: 2013Q4

REPORT INFORMATION
  Report Type: Spontaneous
  Country: US (occurrence: US)
  Receive Date: 20131126
  Receipt Date: 20131126
  Transmission Date: 20140711
  Serious: No
  Sender: FDA-Public Use
  Company Number: US-BRISTOL-MYERS SQUIBB COMPANY-18966291

PATIENT
  Age: 49 Year
  Sex: Female
  Weight: 111.11 kg

DRUGS (4)
  1. BYDUREON [Suspect]
     Indication: TYPE 2 DIABETES MELLITUS
     Dates: start: 2013
  2. METFORMIN HCL TABS [Suspect]
     Dosage: DOSE WAS INCREASED FROM 500 TABS MG PO TID TO 850 TABS MG PO TID
     Route: 048
  3. PAXIL [Concomitant]
  4. WELLBUTRIN [Concomitant]

REACTIONS (2)
  - Anger [Unknown]
  - Agitation [Unknown]
